FAERS Safety Report 9979331 (Version 1)
Quarter: 2014Q1

REPORT INFORMATION
  Report Type: Report from Study
  Country: PR (occurrence: PR)
  Receive Date: 20140306
  Receipt Date: 20140306
  Transmission Date: 20141002
  Serious: No
  Sender: FDA-Public Use
  Company Number: PR-ABBVIE-13P-131-1170375-00

PATIENT
  Age: 44 Year
  Sex: Male
  Weight: 125.76 kg

DRUGS (6)
  1. HUMIRA [Suspect]
     Indication: PSORIASIS
     Route: 058
     Dates: start: 2003, end: 20131101
  2. HUMIRA [Suspect]
     Indication: PSORIATIC ARTHROPATHY
  3. UNKNOWN MEDICATION [Concomitant]
     Indication: HYPERTENSION
  4. ULTRACET [Concomitant]
     Indication: PAIN
     Route: 048
  5. VICODIN [Concomitant]
     Indication: PAIN
     Route: 048
  6. TORADOL [Concomitant]
     Indication: PAIN
     Route: 048

REACTIONS (8)
  - Fatigue [Unknown]
  - Nasopharyngitis [Unknown]
  - Sinusitis [Not Recovered/Not Resolved]
  - Swelling face [Not Recovered/Not Resolved]
  - Nasopharyngitis [Recovered/Resolved]
  - Nasopharyngitis [Recovered/Resolved]
  - Nasopharyngitis [Not Recovered/Not Resolved]
  - Arthralgia [Not Recovered/Not Resolved]
